FAERS Safety Report 6751187-7 (Version None)
Quarter: 2010Q2

REPORT INFORMATION
  Report Type: 
  Country: None (occurrence: None)
  Receive Date: 20100602
  Receipt Date: 20100524
  Transmission Date: 20101027
  Serious: Yes (Hospitalization)
  Sender: FDA-Public Use
  Company Number: GB-SANOFI-AVENTIS-2010SA023989

PATIENT
  Age: 35 Year
  Sex: Female
  Weight: 72 kg

DRUGS (3)
  1. TAXOTERE [Suspect]
     Route: 041
     Dates: start: 20100413, end: 20100413
  2. TAXOTERE [Suspect]
  3. HERCEPTIN [Concomitant]
     Route: 042
     Dates: start: 20100412

REACTIONS (3)
  - ISCHAEMIC STROKE [None]
  - ORAL PAIN [None]
  - PAIN [None]
